FAERS Safety Report 15516389 (Version 1)
Quarter: 2018Q4

REPORT INFORMATION
  Report Type: Spontaneous
  Country: US (occurrence: US)
  Receive Date: 20181017
  Receipt Date: 20181017
  Transmission Date: 20190205
  Serious: No
  Sender: FDA-Public Use
  Company Number: US-CIPLA LTD.-2017US22592

PATIENT

DRUGS (7)
  1. ESCITALOPRAM [Suspect]
     Active Substance: ESCITALOPRAM OXALATE
     Indication: ANXIETY
     Dosage: 5 MG, QD
     Route: 048
  2. CARTIA XT [Concomitant]
     Active Substance: DILTIAZEM HYDROCHLORIDE
     Indication: HYPERTENSION
     Dosage: 300 MG, QD
     Route: 065
  3. LIOTHYRONINE SODIUM (T3) [Concomitant]
     Active Substance: LIOTHYRONINE SODIUM
     Indication: HYPOTHYROIDISM
     Dosage: 5 MG, UNK
     Route: 065
  4. LEVOTHYROXINE                      /00068002/ [Concomitant]
     Active Substance: LEVOTHYROXINE
     Indication: HYPOTHYROIDISM
     Dosage: UNK, 2 TABLETS 3 TIMES A WEEK AND ONE TABLET 4 TIMES A WEEK
     Route: 065
  5. ESCITALOPRAM [Suspect]
     Active Substance: ESCITALOPRAM OXALATE
     Indication: DEPRESSION
  6. METOPROLOL. [Concomitant]
     Active Substance: METOPROLOL
     Indication: HYPERTENSION
     Dosage: 45 MG, QD
     Route: 065
     Dates: start: 20180119
  7. CARDIZEM [Concomitant]
     Active Substance: DILTIAZEM HYDROCHLORIDE
     Indication: HYPERTENSION
     Dosage: 180 MG, QD
     Route: 065
     Dates: start: 20180119

REACTIONS (3)
  - Product substitution issue [Unknown]
  - Tinnitus [Not Recovered/Not Resolved]
  - Therapeutic response unexpected [Unknown]
